FAERS Safety Report 11214393 (Version 2)
Quarter: 2015Q2

REPORT INFORMATION
  Report Type: Spontaneous
  Country: IT (occurrence: IT)
  Receive Date: 20150624
  Receipt Date: 20150626
  Transmission Date: 20150821
  Serious: Yes (Other)
  Sender: FDA-Public Use
  Company Number: IT-AMGEN-ITASP2015055780

PATIENT
  Age: 74 Year
  Sex: Male

DRUGS (9)
  1. CORLENTOR [Suspect]
     Active Substance: IVABRADINE HYDROCHLORIDE
     Indication: CORONARY ARTERY DISEASE
     Dosage: 5 MG, BID (10 MG DAILY)
     Route: 048
     Dates: start: 20140825
  2. CARDICOR [Suspect]
     Active Substance: BISOPROLOL
     Indication: CORONARY ARTERY DISEASE
     Dosage: 1.25 MG, DAILY
     Route: 048
     Dates: end: 20150519
  3. CRESTOR [Concomitant]
     Active Substance: ROSUVASTATIN CALCIUM
     Dosage: 40 MG DAILY
  4. REAPTAN [Concomitant]
     Active Substance: AMLODIPINE BESYLATE
     Dosage: 5 MG /5 MG DAILY)
  5. ZYLORIC [Concomitant]
     Active Substance: ALLOPURINOL
     Dosage: 150 MG DAILY
  6. XATRAL [Concomitant]
     Active Substance: ALFUZOSIN
     Dosage: 10 MG DAILY
  7. PANTECTA [Concomitant]
     Active Substance: PANTOPRAZOLE SODIUM
     Dosage: 20 MG DAILY
  8. AVODART [Concomitant]
     Active Substance: DUTASTERIDE
     Dosage: 0.5 MG DAILY
  9. DUOPLAVIN [Concomitant]
     Active Substance: ASPIRIN\CLOPIDOGREL
     Indication: ANTIPLATELET THERAPY
     Dosage: (75/100 MG DAILY)

REACTIONS (9)
  - Hypermetropia [Not Recovered/Not Resolved]
  - Palpitations [Unknown]
  - Astigmatism [Not Recovered/Not Resolved]
  - Vision blurred [Unknown]
  - Photopsia [Recovered/Resolved]
  - Bradycardia [Recovering/Resolving]
  - Visual acuity reduced [Not Recovered/Not Resolved]
  - Myopia [Not Recovered/Not Resolved]
  - Vitreous floaters [Unknown]

NARRATIVE: CASE EVENT DATE: 20140930
